FAERS Safety Report 7157324-7 (Version None)
Quarter: 2010Q4

REPORT INFORMATION
  Report Type: 
  Country: None (occurrence: None)
  Receive Date: 20101214
  Receipt Date: 20101203
  Transmission Date: 20110411
  Serious: No
  Sender: FDA-Public Use
  Company Number: US-PFIZER INC-2010164119

PATIENT
  Sex: Female
  Weight: 66.667 kg

DRUGS (1)
  1. XALATAN [Suspect]
     Indication: GLAUCOMA
     Dosage: UNKNOWN DOSE ONCE A DAY

REACTIONS (1)
  - PARAESTHESIA [None]
